FAERS Safety Report 25470404 (Version 1)
Quarter: 2025Q2

REPORT INFORMATION
  Report Type: Spontaneous
  Country: AU (occurrence: AU)
  Receive Date: 20250624
  Receipt Date: 20250624
  Transmission Date: 20250717
  Serious: Yes (Other)
  Sender: ALKEM
  Company Number: AU-ALKEM LABORATORIES LIMITED-AU-ALKEM-2024-26701

PATIENT

DRUGS (3)
  1. AMLODIPINE BESYLATE [Suspect]
     Active Substance: AMLODIPINE BESYLATE
     Indication: Product used for unknown indication
     Route: 065
  2. TELMISARTAN [Suspect]
     Active Substance: TELMISARTAN
     Indication: Product used for unknown indication
     Route: 065
  3. INDAPAMIDE HEMIHYDRATE [Suspect]
     Active Substance: INDAPAMIDE HEMIHYDRATE
     Indication: Product used for unknown indication
     Route: 065

REACTIONS (5)
  - Acute myocardial infarction [Unknown]
  - COVID-19 [Unknown]
  - Headache [Unknown]
  - Hypotension [Unknown]
  - Oedema peripheral [Unknown]
